FAERS Safety Report 10020334 (Version 1)
Quarter: 2014Q1

REPORT INFORMATION
  Report Type: Spontaneous
  Country: US (occurrence: US)
  Receive Date: 20140319
  Receipt Date: 20140319
  Transmission Date: 20141002
  Serious: No
  Sender: FDA-Public Use
  Company Number: US-BIOGENIDEC-2014BI020370

PATIENT
  Age: 58 Year
  Sex: Female

DRUGS (8)
  1. TECFIDERA [Suspect]
     Indication: MULTIPLE SCLEROSIS
     Route: 048
     Dates: start: 20140227
  2. FLUOXETINE HCL [Concomitant]
  3. BACLOFEN [Concomitant]
  4. CO-Q 10 OMEGA-3 FISH OIL [Concomitant]
  5. REMARIN [Concomitant]
  6. AMLODIPINE BESYLATE [Concomitant]
  7. GRAPE SEED EXTRACT [Concomitant]
  8. NAMENDA [Concomitant]

REACTIONS (2)
  - Flatulence [Not Recovered/Not Resolved]
  - Flushing [Not Recovered/Not Resolved]
